FAERS Safety Report 5968227-5 (Version None)
Quarter: 2008Q4

REPORT INFORMATION
  Report Type: 
  Country: None (occurrence: None)
  Receive Date: 20081126
  Receipt Date: 20081121
  Transmission Date: 20090506
  Serious: Yes (Other)
  Sender: FDA-Public Use
  Company Number: B0547307A

PATIENT
  Age: 5 Year
  Sex: Male

DRUGS (4)
  1. MELPHALAN [Suspect]
     Indication: ALLOGENIC BONE MARROW TRANSPLANTATION THERAPY
     Dosage: 140MGM2 CYCLIC
     Route: 042
  2. BUSULPHAN [Suspect]
     Indication: ALLOGENIC BONE MARROW TRANSPLANTATION THERAPY
     Dosage: 1.1MGK FOUR TIMES PER DAY
     Route: 042
  3. CYTARABINE [Suspect]
     Indication: ALLOGENIC BONE MARROW TRANSPLANTATION THERAPY
     Dosage: 2GM2 CYCLIC
     Route: 065
  4. TOTAL BODY IRRADIATION [Suspect]
     Indication: ALLOGENIC BONE MARROW TRANSPLANTATION THERAPY
     Dosage: 2GY CYCLIC
     Route: 065

REACTIONS (3)
  - BRONCHITIS [None]
  - INTERSTITIAL LUNG DISEASE [None]
  - OXYGEN SATURATION DECREASED [None]
